FAERS Safety Report 6166665-1 (Version None)
Quarter: 2009Q2

REPORT INFORMATION
  Report Type: 
  Country: None (occurrence: None)
  Receive Date: 20090423
  Receipt Date: 20090423
  Transmission Date: 20091009
  Serious: Yes (Hospitalization)
  Sender: FDA-Public Use
  Company Number: None

PATIENT
  Age: 67 Year
  Sex: Male
  Weight: 107 kg

DRUGS (14)
  1. RISPERIDONE [Suspect]
     Indication: POST-TRAUMATIC STRESS DISORDER
     Dosage: 1MG PO QHS
     Route: 048
     Dates: start: 20080501
  2. DOXAZOSIN MESYLATE [Concomitant]
  3. FLUOXETINE HCL [Concomitant]
  4. FOSINOPRIL SODIUM [Concomitant]
  5. IBP [Concomitant]
  6. INSULIN [Concomitant]
  7. NORTRIPTYLINE HCL [Concomitant]
  8. OMEPRAZOLE [Concomitant]
  9. VARDENAFIL [Concomitant]
  10. BACLOFEN [Concomitant]
  11. LOVASTATIN [Concomitant]
  12. PIOGLITAZONE [Concomitant]
  13. CLOTRIMAZOLE SOLN [Concomitant]
  14. IRON [Concomitant]

REACTIONS (3)
  - FATIGUE [None]
  - PROSTATITIS [None]
  - URINARY TRACT INFECTION [None]
